FAERS Safety Report 9668121 (Version 1)
Quarter: 2013Q4

REPORT INFORMATION
  Report Type: Spontaneous
  Country: FI (occurrence: FI)
  Receive Date: 20131104
  Receipt Date: 20131104
  Transmission Date: 20140711
  Serious: No
  Sender: FDA-Public Use
  Company Number: FI-JNJFOC-20131017346

PATIENT
  Age: 57 Year
  Sex: Female

DRUGS (1)
  1. DUROGESIC [Suspect]
     Indication: NEURALGIA
     Route: 062
     Dates: start: 2009

REACTIONS (2)
  - Inappropriate schedule of drug administration [Unknown]
  - Product quality issue [Unknown]
